FAERS Safety Report 13151744 (Version 2)
Quarter: 2017Q1

REPORT INFORMATION
  Report Type: Report from Study
  Country: NL (occurrence: NL)
  Receive Date: 20170125
  Receipt Date: 20170207
  Transmission Date: 20170428
  Serious: Yes (Hospitalization)
  Sender: FDA-Public Use
  Company Number: NL-ASTRAZENECA-2014SE26739

PATIENT
  Age: 67 Year
  Sex: Female

DRUGS (8)
  1. CRESTOR [Concomitant]
     Active Substance: ROSUVASTATIN CALCIUM
  2. TICAGRELOR [Suspect]
     Active Substance: TICAGRELOR
     Indication: ACUTE CORONARY SYNDROME
     Route: 048
     Dates: end: 20140130
  3. PERINDOPRIL [Concomitant]
     Active Substance: PERINDOPRIL
  4. TICAGRELOR [Suspect]
     Active Substance: TICAGRELOR
     Indication: ACUTE CORONARY SYNDROME
     Route: 048
     Dates: start: 20131029
  5. ASPIRIN. [Suspect]
     Active Substance: ASPIRIN
     Indication: ACUTE CORONARY SYNDROME
     Dosage: (NON-AZ PRODUCT); 100 MG DAILY
     Route: 048
     Dates: start: 20131029
  6. NTG [Concomitant]
     Active Substance: NITROGLYCERIN
  7. PANTOPRAZOLE [Concomitant]
     Active Substance: PANTOPRAZOLE SODIUM
  8. MONOCEDOCARD [Concomitant]

REACTIONS (1)
  - Gastrointestinal angiodysplasia haemorrhagic [Recovered/Resolved]

NARRATIVE: CASE EVENT DATE: 20131119
